FAERS Safety Report 4680746-0 (Version None)
Quarter: 2005Q2

REPORT INFORMATION
  Report Type: 
  Country: None (occurrence: None)
  Receive Date: 20050603
  Receipt Date: 20050525
  Transmission Date: 20051028
  Serious: Yes (Hospitalization, Other)
  Sender: FDA-Public Use
  Company Number: PHRM2005FR01643

PATIENT
  Age: 68 Year
  Sex: Male

DRUGS (2)
  1. KETEK [Suspect]
     Dosage: 800 MG, QD
     Route: 048
  2. LESCOL [Suspect]
     Indication: DYSLIPIDAEMIA
     Dosage: 80 MG, QD
     Route: 048
     Dates: start: 20040101

REACTIONS (3)
  - APHASIA [None]
  - MALAISE [None]
  - PARAESTHESIA ORAL [None]
